FAERS Safety Report 7802704-7 (Version None)
Quarter: 2011Q4

REPORT INFORMATION
  Report Type: 
  Country: None (occurrence: None)
  Receive Date: 20111007
  Receipt Date: 20111003
  Transmission Date: 20120403
  Serious: Yes (Other)
  Sender: FDA-Public Use
  Company Number: PHHY2010CA83036

PATIENT
  Sex: Female

DRUGS (6)
  1. VITAMIN D [Concomitant]
  2. ARIMIDEX [Concomitant]
     Dates: start: 20060101
  3. CHEMOTHERAPEUTICS NOS [Concomitant]
  4. ZOMETA [Suspect]
     Indication: BREAST CANCER
     Dates: start: 20060201
  5. RADIATION THERAPY [Concomitant]
  6. CALCIUM CARBONATE [Concomitant]
     Dosage: 2000 MG, UNK

REACTIONS (14)
  - OSTEOPOROSIS [None]
  - ARTICULAR CALCIFICATION [None]
  - ARTHRALGIA [None]
  - ABASIA [None]
  - FATIGUE [None]
  - INFLAMMATION [None]
  - CYST [None]
  - TENDON RUPTURE [None]
  - FALL [None]
  - BONE PAIN [None]
  - LIMB INJURY [None]
  - DRUG INEFFECTIVE [None]
  - BONE DENSITY DECREASED [None]
  - INFLUENZA LIKE ILLNESS [None]
